FAERS Safety Report 16383924 (Version 1)
Quarter: 2019Q2

REPORT INFORMATION
  Report Type: Spontaneous
  Country: US (occurrence: US)
  Receive Date: 20190531
  Receipt Date: 20190531
  Transmission Date: 20190711
  Serious: Yes (Hospitalization)
  Sender: FDA-Public Use
  Company Number: None

PATIENT
  Age: 51 Year
  Sex: Female
  Weight: 96 kg

DRUGS (20)
  1. COLESTIPOL [Concomitant]
     Active Substance: COLESTIPOL
  2. LOPERAMIDE [Concomitant]
     Active Substance: LOPERAMIDE
  3. ADO-TRASTUZUMAB [Suspect]
     Active Substance: ADO-TRASTUZUMAB EMTANSINE
     Indication: BREAST CANCER
     Dosage: ?          OTHER FREQUENCY:ONCE;?
     Route: 042
     Dates: start: 20190206, end: 20190227
  4. GABAPENTIN. [Concomitant]
     Active Substance: GABAPENTIN
  5. LEVOTHYROXINE. [Concomitant]
     Active Substance: LEVOTHYROXINE
  6. NERATINIB [Concomitant]
     Active Substance: NERATINIB
  7. WARFARIN [Concomitant]
     Active Substance: WARFARIN
  8. BUMETADINE [Concomitant]
     Active Substance: BUMETANIDE
  9. FLUOXETINE [Concomitant]
     Active Substance: FLUOXETINE HYDROCHLORIDE
  10. LETROZOLE. [Concomitant]
     Active Substance: LETROZOLE
  11. LIDOCAINE. [Concomitant]
     Active Substance: LIDOCAINE
  12. NEBIVOLOL. [Concomitant]
     Active Substance: NEBIVOLOL
  13. WARFARIN [Concomitant]
     Active Substance: WARFARIN
  14. ACYCLOVIR. [Concomitant]
     Active Substance: ACYCLOVIR
  15. ASPIRIN. [Concomitant]
     Active Substance: ASPIRIN
  16. MELATONIN [Concomitant]
     Active Substance: MELATONIN
  17. GLYCOLAX [Concomitant]
     Active Substance: POLYETHYLENE GLYCOL 3350
  18. SENNA [Concomitant]
     Active Substance: SENNA LEAF\SENNOSIDES\SENNOSIDES A AND B
  19. CALCIUM [Concomitant]
     Active Substance: CALCIUM
  20. RANITIDINE. [Concomitant]
     Active Substance: RANITIDINE

REACTIONS (1)
  - Acute respiratory failure [None]

NARRATIVE: CASE EVENT DATE: 20190426
